FAERS Safety Report 4923449-7 (Version None)
Quarter: 2006Q1

REPORT INFORMATION
  Report Type: 
  Country: None (occurrence: None)
  Receive Date: 20060227
  Receipt Date: 20060125
  Transmission Date: 20060701
  Serious: Yes (Hospitalization, Other)
  Sender: FDA-Public Use
  Company Number: PHBS2006JP01408

PATIENT
  Age: 72 Year
  Sex: Female

DRUGS (9)
  1. VOLTAREN [Suspect]
     Indication: ARTHRALGIA
     Dosage: UNK, UNK
     Route: 054
     Dates: start: 20060124
  2. ISALON [Concomitant]
     Dosage: 2 DF/DAY
     Route: 048
     Dates: start: 20060124
  3. SHAKUYAKUKANZOUTOU [Concomitant]
     Dosage: 2 DF/DAY
     Route: 048
     Dates: start: 20060124
  4. HYPEN [Concomitant]
     Dosage: 400 MG/DAY
     Route: 048
     Dates: start: 20060124
  5. DEPAS [Concomitant]
     Route: 048
  6. MERISLON [Concomitant]
     Route: 048
  7. RIZE [Concomitant]
     Route: 048
  8. OLMETEC [Concomitant]
     Route: 048
  9. ITAVASTATIN CALCIUM [Concomitant]
     Route: 048

REACTIONS (2)
  - ELECTROCARDIOGRAM QT PROLONGED [None]
  - HYPOKALAEMIA [None]
